FAERS Safety Report 19566302 (Version 4)
Quarter: 2021Q3

REPORT INFORMATION
  Report Type: Spontaneous
  Country: JP (occurrence: JP)
  Receive Date: 20210715
  Receipt Date: 20210827
  Transmission Date: 20211014
  Serious: Yes (Disabling)
  Sender: FDA-Public Use
  Company Number: JP-ASTRAZENECA-2021A607930

PATIENT
  Age: 17684 Day
  Sex: Male

DRUGS (10)
  1. PULMICORT TURBUHALER [Concomitant]
     Active Substance: BUDESONIDE
     Indication: ASTHMA
     Route: 055
     Dates: start: 20210527
  2. TAKECAB [Concomitant]
     Active Substance: VONOPRAZAN FUMARATE
     Indication: GASTRIC ULCER
     Route: 048
     Dates: start: 20210520
  3. DIART [Concomitant]
     Route: 065
     Dates: end: 20210614
  4. MAINTATE [Concomitant]
     Active Substance: BISOPROLOL FUMARATE
     Indication: CARDIAC FAILURE CHRONIC
     Route: 048
     Dates: start: 20210527
  5. L?CARBOCISTEINE [Concomitant]
     Active Substance: CARBOCYSTEINE
     Indication: ASTHMA
     Route: 048
     Dates: start: 20210521, end: 20210611
  6. SPIRONOLACTONE. [Suspect]
     Active Substance: SPIRONOLACTONE
     Indication: CARDIAC FAILURE CHRONIC
     Route: 048
     Dates: start: 20210520, end: 20210714
  7. ENTRESTO [Concomitant]
     Active Substance: SACUBITRIL\VALSARTAN
     Indication: CARDIAC FAILURE CHRONIC
     Route: 048
     Dates: start: 20210603, end: 20210621
  8. FORXIGA [Suspect]
     Active Substance: DAPAGLIFLOZIN
     Indication: CARDIAC FAILURE CHRONIC
     Route: 048
     Dates: start: 20210610, end: 20210614
  9. SULBACILLIN [Concomitant]
     Active Substance: AMPICILLIN SODIUM\SULBACTAM SODIUM
     Indication: PNEUMONIA BACTERIAL
     Route: 042
  10. WARFARIN [Concomitant]
     Active Substance: WARFARIN
     Indication: CARDIAC FAILURE CHRONIC
     Route: 048
     Dates: start: 20210524

REACTIONS (1)
  - Tubulointerstitial nephritis [Not Recovered/Not Resolved]

NARRATIVE: CASE EVENT DATE: 20210611
